FAERS Safety Report 8796964 (Version 1)
Quarter: 2012Q4

REPORT INFORMATION
  Report Type: 
  Country: BR (occurrence: BR)
  Receive Date: 20120920
  Receipt Date: 20120920
  Transmission Date: 20130627
  Serious: Yes (Hospitalization, Other)
  Sender: FDA-Public Use
  Company Number: PHHY2012BR080954

PATIENT
  Sex: Male

DRUGS (1)
  1. FORASEQ [Suspect]
     Indication: RESPIRATORY DISORDER
     Dosage: 1 DF, BID

REACTIONS (5)
  - Gangrene [Unknown]
  - Renal impairment [Unknown]
  - Wrong technique in drug usage process [Unknown]
  - Haemodialysis [None]
  - Leg amputation [None]
